FAERS Safety Report 13842708 (Version 1)
Quarter: 2017Q3

REPORT INFORMATION
  Report Type: Report from Study
  Country: NL (occurrence: NL)
  Receive Date: 20170808
  Receipt Date: 20170808
  Transmission Date: 20171127
  Serious: Yes (Other)
  Sender: FDA-Public Use
  Company Number: NL-TOLMAR, INC.-2017NL010349

PATIENT
  Sex: Male

DRUGS (3)
  1. ELIGARD [Suspect]
     Active Substance: LEUPROLIDE ACETATE
     Dosage: 45 MG, 1X PER 26 WEEKS 1 INJECTION
     Route: 058
     Dates: start: 20160802
  2. ELIGARD [Suspect]
     Active Substance: LEUPROLIDE ACETATE
     Dosage: 45 MG, 1X PER 26 WEEKS 1 INJECTION
     Route: 058
     Dates: start: 20170131
  3. ELIGARD [Suspect]
     Active Substance: LEUPROLIDE ACETATE
     Indication: PROSTATE CANCER
     Dosage: 45 MG, 1X PER 26 WEEKS 1 INJECTION
     Route: 058
     Dates: start: 20160202

REACTIONS (1)
  - Terminal state [Unknown]
